FAERS Safety Report 6608109-9 (Version None)
Quarter: 2010Q1

REPORT INFORMATION
  Report Type: 
  Country: None (occurrence: None)
  Receive Date: 20100226
  Receipt Date: 20100226
  Transmission Date: 20100710
  Serious: No
  Sender: FDA-Public Use
  Company Number: None

PATIENT
  Age: 42 Year
  Sex: Male
  Weight: 65.7716 kg

DRUGS (9)
  1. QUETIAPINE [Suspect]
     Dosage: 1200MG DAY PO
     Route: 048
     Dates: start: 20080214, end: 20080915
  2. ALBUTEROL SULATE [Concomitant]
  3. VITAMIN AND MINERAL PRENATAL SUPPLEMENT W/ FOLIC ACID CAP [Concomitant]
  4. GUAIFENESIN [Concomitant]
  5. TRIHEXYPHENIDYL HCL [Concomitant]
  6. LEVOTHYROXINE [Concomitant]
  7. LORAZEPAM [Concomitant]
  8. HALOPERIDOL ORAL AND DEC [Concomitant]
  9. TRIAMCINOLONE [Concomitant]

REACTIONS (1)
  - WEIGHT FLUCTUATION [None]
